FAERS Safety Report 5712088-6 (Version None)
Quarter: 2008Q2

REPORT INFORMATION
  Report Type: 
  Country: None (occurrence: None)
  Receive Date: 20080418
  Receipt Date: 20080414
  Transmission Date: 20081010
  Serious: Yes (Death, Hospitalization)
  Sender: FDA-Public Use
  Company Number: CLOF-1000118

PATIENT
  Age: 16 Year

DRUGS (3)
  1. CLOLAR [Suspect]
     Indication: B PRECURSOR TYPE ACUTE LEUKAEMIA
     Dates: start: 20080108, end: 20080113
  2. ETOPOSIDE [Suspect]
     Indication: B PRECURSOR TYPE ACUTE LEUKAEMIA
     Dosage: 160 MG, QD, INTRAVENOUS
     Route: 042
     Dates: start: 20080109, end: 20080113
  3. CYCLOPHOSPHAMIDE [Suspect]
     Indication: B PRECURSOR TYPE ACUTE LEUKAEMIA
     Dosage: 700 MG, QD, INTRAVENOUS
     Route: 042
     Dates: start: 20080109, end: 20080113

REACTIONS (5)
  - BRONCHOPULMONARY ASPERGILLOSIS [None]
  - CHOLECYSTITIS [None]
  - HYPERBILIRUBINAEMIA [None]
  - MENTAL STATUS CHANGES [None]
  - PANCYTOPENIA [None]
